FAERS Safety Report 9445132 (Version 6)
Quarter: 2014Q1

REPORT INFORMATION
  Report Type: Spontaneous
  Country: SE (occurrence: None)
  Receive Date: 20130802
  Receipt Date: 20140219
  Transmission Date: 20141002
  Serious: Yes (Life-Threatening, Hospitalization)
  Sender: FDA-Public Use
  Company Number: 2013SE002118

PATIENT
  Age: 65 Year
  Sex: Male
  Weight: 77 kg

DRUGS (2)
  1. PONATINIB [Suspect]
     Indication: CHRONIC MYELOID LEUKAEMIA
     Route: 048
     Dates: start: 20130429, end: 20130721
  2. SIMVASTATIN (SIMVASTATIN) [Concomitant]

REACTIONS (6)
  - Acute myocardial infarction [None]
  - Bradycardia [None]
  - Haemoglobin decreased [None]
  - Haematocrit decreased [None]
  - Myocardial fibrosis [None]
  - Myocardial ischaemia [None]
